FAERS Safety Report 4753273-X (Version None)
Quarter: 2005Q3

REPORT INFORMATION
  Report Type: 
  Country: None (occurrence: None)
  Receive Date: 20050826
  Receipt Date: 20050815
  Transmission Date: 20060218
  Serious: Yes (Hospitalization, Other)
  Sender: FDA-Public Use
  Company Number: US-BRISTOL-MYERS SQUIBB COMPANY-13077474

PATIENT
  Age: 3 Year
  Sex: Female

DRUGS (2)
  1. KENALOG [Suspect]
     Dosage: 1.2CC TRIAMCINOLONE ACETONIDE (KENALOG 40 MG/CC)
     Route: 026
     Dates: start: 19820401, end: 19830401
  2. CELESTONE TAB [Concomitant]
     Dosage: 1.22 CC OF BETAMETHASONE SODIUM PHOSPHATE/ BETAMETHASONE ACETATE (CELESTONE SOLUSPAN 6 MG/CC)
     Route: 026
     Dates: start: 19820401, end: 19830401

REACTIONS (1)
  - RETINAL ARTERY OCCLUSION [None]
